FAERS Safety Report 19259392 (Version 2)
Quarter: 2021Q2

REPORT INFORMATION
  Report Type: Report from Study
  Country: US (occurrence: US)
  Receive Date: 20210514
  Receipt Date: 20210630
  Transmission Date: 20210717
  Serious: Yes (Hospitalization, Other)
  Sender: FDA-Public Use
  Company Number: US-EXELIXIS-CABO-21039274

PATIENT
  Age: 66 Year
  Sex: Male

DRUGS (18)
  1. CABOMETYX [Suspect]
     Active Substance: CABOZANTINIB S-MALATE
     Indication: NEUROENDOCRINE TUMOUR OF THE LUNG
     Dosage: 60 MG, QD
     Dates: start: 20210325, end: 20210518
  2. ONDANSETRON [Concomitant]
     Active Substance: ONDANSETRON
  3. ANUCORT?HC [Concomitant]
     Active Substance: HYDROCORTISONE ACETATE
  4. GUAITUSSIN AC [Concomitant]
  5. LEVOTHYROXINE. [Concomitant]
     Active Substance: LEVOTHYROXINE
  6. CABOMETYX [Suspect]
     Active Substance: CABOZANTINIB S-MALATE
     Indication: METASTASES TO LIVER
  7. CABOMETYX [Suspect]
     Active Substance: CABOZANTINIB S-MALATE
     Indication: METASTASES TO BONE
  8. BENZONATATE. [Concomitant]
     Active Substance: BENZONATATE
  9. SODIUM CHLORIDE. [Concomitant]
     Active Substance: SODIUM CHLORIDE
  10. LOSARTAN. [Concomitant]
     Active Substance: LOSARTAN
  11. POTASSIUM CHLORIDE. [Concomitant]
     Active Substance: POTASSIUM CHLORIDE
  12. ATORVASTATIN [Concomitant]
     Active Substance: ATORVASTATIN
  13. CABOMETYX [Suspect]
     Active Substance: CABOZANTINIB S-MALATE
     Indication: METASTASES TO SPINE
  14. OXYCODONE [Concomitant]
     Active Substance: OXYCODONE
  15. OMEPRAZOLE. [Concomitant]
     Active Substance: OMEPRAZOLE
  16. AMLODIPINE [Concomitant]
     Active Substance: AMLODIPINE BESYLATE
  17. ALBUTEROL SULFATE. [Concomitant]
     Active Substance: ALBUTEROL SULFATE
  18. CARVEDILOL. [Concomitant]
     Active Substance: CARVEDILOL

REACTIONS (10)
  - Blood pressure decreased [Recovered/Resolved]
  - Dysphonia [Unknown]
  - Cough [Unknown]
  - Pleural effusion [Recovered/Resolved]
  - Pericardial effusion [Unknown]
  - Dizziness [Unknown]
  - Hypertensive urgency [Recovered/Resolved]
  - Fatigue [Unknown]
  - Diarrhoea [Recovered/Resolved]
  - Off label use [Unknown]

NARRATIVE: CASE EVENT DATE: 20210405
